FAERS Safety Report 9315336 (Version 1)
Quarter: 2013Q2

REPORT INFORMATION
  Report Type: Spontaneous
  Country: US (occurrence: US)
  Receive Date: 20130529
  Receipt Date: 20130529
  Transmission Date: 20140414
  Serious: No
  Sender: FDA-Public Use
  Company Number: US-PFIZER INC-2013163377

PATIENT
  Age: 52 Year
  Sex: Female
  Weight: 55.33 kg

DRUGS (3)
  1. NEURONTIN [Suspect]
     Indication: EPILEPSY
     Dosage: 300 MG, 3X/DAY
     Route: 048
     Dates: start: 1980
  2. PROZAC [Concomitant]
     Indication: DEPRESSION
     Dosage: UNK
  3. TAMOXIFEN [Concomitant]
     Dosage: UNK

REACTIONS (2)
  - Panic attack [Unknown]
  - Anxiety [Unknown]
